FAERS Safety Report 7291991-2 (Version None)
Quarter: 2011Q1

REPORT INFORMATION
  Report Type: 
  Country: None (occurrence: None)
  Receive Date: 20110214
  Receipt Date: 20110201
  Transmission Date: 20110831
  Serious: Yes (Hospitalization)
  Sender: FDA-Public Use
  Company Number: GB-MYLANLABS-2011S1002163

PATIENT
  Age: 86 Year
  Sex: Male

DRUGS (8)
  1. TIOTROPIUM [Suspect]
     Indication: CHRONIC OBSTRUCTIVE PULMONARY DISEASE
  2. BENDROFLUMETHIAZIDE [Suspect]
     Indication: HYPERTENSION
     Route: 048
     Dates: end: 20101201
  3. LANSOPRAZOLE [Concomitant]
     Indication: PROPHYLAXIS
     Route: 048
  4. ASPIRIN [Concomitant]
     Indication: ANTIPLATELET THERAPY
     Route: 048
  5. AMLODIPINE [Suspect]
     Indication: PRODUCT USED FOR UNKNOWN INDICATION
     Route: 048
     Dates: end: 20101221
  6. SCOPODERM /00008701/ [Suspect]
     Indication: SALIVARY HYPERSECRETION
     Route: 062
     Dates: start: 20101214, end: 20101230
  7. SERETIDE [Concomitant]
     Indication: CHRONIC OBSTRUCTIVE PULMONARY DISEASE
  8. DOCUSATE [Concomitant]
     Indication: CONSTIPATION
     Route: 048

REACTIONS (5)
  - LOSS OF CONSCIOUSNESS [None]
  - OFF LABEL USE [None]
  - PRODUCTIVE COUGH [None]
  - DRY MOUTH [None]
  - FALL [None]
